FAERS Safety Report 5995102-2 (Version None)
Quarter: 2008Q4

REPORT INFORMATION
  Report Type: 
  Country: None (occurrence: None)
  Receive Date: 20081212
  Receipt Date: 20081210
  Transmission Date: 20090506
  Serious: Yes (Hospitalization)
  Sender: FDA-Public Use
  Company Number: US-PFIZER INC-2008064138

PATIENT
  Sex: Male
  Weight: 84.37 kg

DRUGS (11)
  1. BLINDED *PLACEBO [Suspect]
     Indication: OSTEOARTHRITIS
     Dosage: 7 TABS DAILY
     Route: 048
     Dates: start: 20071121
  2. CELECOXIB [Suspect]
     Indication: OSTEOARTHRITIS
     Dosage: 7 TABS DAILY
     Route: 048
     Dates: start: 20071121
  3. BLINDED IBUPROFEN [Suspect]
     Indication: OSTEOARTHRITIS
     Dosage: 7 TABS DAILY
     Route: 048
     Dates: start: 20071121
  4. BLINDED NAPROXEN [Suspect]
     Indication: OSTEOARTHRITIS
     Dosage: 7 TABS DAILY
     Route: 048
     Dates: start: 20071121
  5. NEXIUM [Concomitant]
     Indication: PROPHYLAXIS
     Dosage: FREQUENCY: QD; INTERVAL: EVERYDAY
     Route: 048
     Dates: start: 20071121, end: 20080605
  6. COSOPT [Concomitant]
     Route: 047
     Dates: start: 20071029
  7. NORVASC [Concomitant]
     Route: 048
     Dates: start: 20050208
  8. LISINOPRIL AND HYDROCHLOROTHIAZIDE [Concomitant]
     Route: 048
     Dates: start: 20070703
  9. ASPIRIN [Concomitant]
     Route: 048
     Dates: start: 20071029
  10. LOVAZA [Concomitant]
     Route: 048
     Dates: start: 20071029
  11. BIMATOPROST [Concomitant]
     Route: 047
     Dates: start: 20071029

REACTIONS (2)
  - OSTEOARTHRITIS [None]
  - PULMONARY EMBOLISM [None]
